FAERS Safety Report 15406756 (Version 6)
Quarter: 2018Q4

REPORT INFORMATION
  Report Type: Report from Study
  Country: US (occurrence: US)
  Receive Date: 20180920
  Receipt Date: 20181217
  Transmission Date: 20190204
  Serious: Yes (Other)
  Sender: FDA-Public Use
  Company Number: US-PFIZER INC-2018378906

PATIENT
  Age: 60 Year
  Sex: Female

DRUGS (3)
  1. IBRANCE [Suspect]
     Active Substance: PALBOCICLIB
     Indication: BREAST CANCER
     Dosage: 100MG, DAILY (CYCLIC 21 DAYS ON, 7 DAYS OFF)
     Route: 048
     Dates: start: 20180903, end: 20180911
  2. IBRANCE [Suspect]
     Active Substance: PALBOCICLIB
     Dosage: 100 MG EVERY OTHER DAY,COMPLETES THE 21 PILLS THEN 7 DAYS OFF
     Route: 048
     Dates: start: 20180913
  3. IBRANCE [Suspect]
     Active Substance: PALBOCICLIB
     Dosage: 75 MG, ALTERNATE DAY (75MG EVERY OTHER DAY FOR 42 DAYS, THEN 7 DAYS OFF)
     Route: 048
     Dates: start: 20181019

REACTIONS (9)
  - Nausea [Recovered/Resolved]
  - Red blood cell count decreased [Recovering/Resolving]
  - Platelet count decreased [Recovering/Resolving]
  - Product use issue [Unknown]
  - Decreased appetite [Recovering/Resolving]
  - Bone marrow failure [Recovering/Resolving]
  - Diarrhoea [Recovering/Resolving]
  - White blood cell count decreased [Recovering/Resolving]
  - Fatigue [Recovering/Resolving]

NARRATIVE: CASE EVENT DATE: 2018
